FAERS Safety Report 20939582 (Version 1)
Quarter: 2022Q2

REPORT INFORMATION
  Report Type: Spontaneous
  Country: US (occurrence: None)
  Receive Date: 20220609
  Receipt Date: 20220609
  Transmission Date: 20220720
  Serious: Yes (Disabling, Other)
  Sender: FDA-Public Use
  Company Number: None

PATIENT
  Age: 64 Year
  Sex: Male
  Weight: 112.04 kg

DRUGS (11)
  1. RYBELSUS [Suspect]
     Active Substance: SEMAGLUTIDE
     Indication: Diabetes mellitus
     Dosage: FREQUENCY : DAILY;?
     Route: 048
     Dates: start: 20220520, end: 20220521
  2. METFORMIN [Concomitant]
     Active Substance: METFORMIN HYDROCHLORIDE
  3. ALOGLIPTIN [Concomitant]
     Active Substance: ALOGLIPTIN
  4. GLIPIZIDE [Concomitant]
     Active Substance: GLIPIZIDE
  5. ASPIRIN [Concomitant]
     Active Substance: ASPIRIN
  6. METOPROLOL [Concomitant]
     Active Substance: METOPROLOL
  7. FLECAINIDE [Concomitant]
     Active Substance: FLECAINIDE
  8. ELEQUIS [Concomitant]
  9. FISH OIL [Concomitant]
     Active Substance: FISH OIL
  10. CINNAMON [Concomitant]
     Active Substance: CINNAMON
  11. PROBIOTICS NOS [Concomitant]
     Active Substance: PROBIOTICS NOS

REACTIONS (16)
  - Chills [None]
  - Renal pain [None]
  - Chills [None]
  - Heart rate increased [None]
  - Throat tightness [None]
  - Dry mouth [None]
  - Nervousness [None]
  - Feeling jittery [None]
  - Lymphadenopathy [None]
  - Miosis [None]
  - Vision blurred [None]
  - Tremor [None]
  - Dry throat [None]
  - Hypopnoea [None]
  - Pharyngeal swelling [None]
  - Dysphonia [None]

NARRATIVE: CASE EVENT DATE: 20220521
